FAERS Safety Report 12694988 (Version 3)
Quarter: 2017Q2

REPORT INFORMATION
  Report Type: Report from Study
  Country: US (occurrence: US)
  Receive Date: 20160829
  Receipt Date: 20170405
  Transmission Date: 20170830
  Serious: Yes (Hospitalization, Other)
  Sender: FDA-Public Use
  Company Number: US-BAYER-2016-104009

PATIENT
  Age: 68 Year
  Sex: Male

DRUGS (21)
  1. MELOXICAM. [Concomitant]
     Active Substance: MELOXICAM
  2. HYDROCHLOROTHIAZIDE AND LISINOPRIL [Concomitant]
     Active Substance: HYDROCHLOROTHIAZIDE\LISINOPRIL
     Dosage: 20-25 MG
  3. TRAMADOL HCL CF [Concomitant]
  4. METOPROLOL. [Concomitant]
     Active Substance: METOPROLOL
  5. NEXAVAR [Suspect]
     Active Substance: SORAFENIB
     Indication: HEPATIC CANCER
     Dosage: 400 MG, BID WITH FOOD
     Route: 048
     Dates: start: 20161021, end: 20170127
  6. OMEPRAZOLE. [Concomitant]
     Active Substance: OMEPRAZOLE
  7. LACTULOSE. [Concomitant]
     Active Substance: LACTULOSE
     Dosage: 10GM/15
  8. NEXAVAR [Suspect]
     Active Substance: SORAFENIB
     Indication: HEPATIC CANCER
     Dosage: 200 MG, BID
     Route: 048
     Dates: start: 20160504, end: 20160527
  9. TRAMADOL. [Concomitant]
     Active Substance: TRAMADOL
  10. ONDANSETRON [Concomitant]
     Active Substance: ONDANSETRON
  11. OXYCODONE/APAP [Concomitant]
     Active Substance: ACETAMINOPHEN\OXYCODONE HYDROCHLORIDE
     Dosage: 5-325 MG
  12. MELOXICAM. [Concomitant]
     Active Substance: MELOXICAM
  13. HYDROXYZINE [Concomitant]
     Active Substance: HYDROXYZINE HYDROCHLORIDE
  14. ZOFRAN [Concomitant]
     Active Substance: ONDANSETRON HYDROCHLORIDE
  15. ESOMEPRAZOLE MAGNESIUM. [Concomitant]
     Active Substance: ESOMEPRAZOLE MAGNESIUM
  16. NEXAVAR [Suspect]
     Active Substance: SORAFENIB
     Indication: HEPATIC CANCER
     Dosage: 400 MG, BID
     Route: 048
     Dates: start: 201605, end: 2016
  17. LISINOPRIL. [Concomitant]
     Active Substance: LISINOPRIL
  18. WARFARIN [Concomitant]
     Active Substance: WARFARIN
  19. CARVEDILOL. [Concomitant]
     Active Substance: CARVEDILOL
  20. MORPHINE SULFATE. [Concomitant]
     Active Substance: MORPHINE SULFATE
  21. OMEPRAZOLE. [Concomitant]
     Active Substance: OMEPRAZOLE

REACTIONS (12)
  - Anal haemorrhage [Recovered/Resolved]
  - Pruritus [Not Recovered/Not Resolved]
  - Volume blood decreased [Not Recovered/Not Resolved]
  - Underdose [Recovered/Resolved]
  - Chest pain [Not Recovered/Not Resolved]
  - Pruritus [Not Recovered/Not Resolved]
  - Epistaxis [Recovered/Resolved]
  - Blood pressure increased [Not Recovered/Not Resolved]
  - Anal fissure [Recovered/Resolved]
  - Anaemia [Not Recovered/Not Resolved]
  - Hospitalisation [Recovered/Resolved]
  - Hyperhidrosis [Not Recovered/Not Resolved]

NARRATIVE: CASE EVENT DATE: 20160504
